FAERS Safety Report 8196232-X (Version None)
Quarter: 2012Q1

REPORT INFORMATION
  Report Type: 
  Country: None (occurrence: None)
  Receive Date: 20120307
  Receipt Date: 20120307
  Transmission Date: 20120608
  Serious: No
  Sender: FDA-Public Use
  Company Number: None

PATIENT
  Sex: Male
  Weight: 89.8 kg

DRUGS (1)
  1. INTRON A [Suspect]
     Dosage: 615 MU
     Dates: start: 20120302

REACTIONS (1)
  - NEUTROPHIL COUNT DECREASED [None]
